FAERS Safety Report 4859883-3 (Version None)
Quarter: 2005Q4

REPORT INFORMATION
  Report Type: 
  Country: None (occurrence: None)
  Receive Date: 20051215
  Receipt Date: 20051202
  Transmission Date: 20060501
  Serious: Yes (Death)
  Sender: FDA-Public Use
  Company Number: 2005124754

PATIENT
  Sex: Male

DRUGS (2)
  1. VIAGRA [Suspect]
     Indication: ILL-DEFINED DISORDER
     Dosage: UNK (50 MG, UNKNOWN), ORAL
     Route: 048
     Dates: start: 20050301, end: 20050101
  2. ANTI-DIABETICS (ANTI-DIABETICS) [Concomitant]

REACTIONS (1)
  - DRUG INEFFECTIVE [None]
